FAERS Safety Report 10191943 (Version 2)
Quarter: 2014Q2

REPORT INFORMATION
  Report Type: Spontaneous
  Country: US (occurrence: US)
  Receive Date: 20140523
  Receipt Date: 20140523
  Transmission Date: 20141212
  Serious: No
  Sender: FDA-Public Use
  Company Number: US-AMGEN INC.-USASP2014028064

PATIENT
  Age: 70 Year
  Sex: Female
  Weight: 83.45 kg

DRUGS (10)
  1. PROLIA [Suspect]
     Indication: OSTEOPOROSIS POSTMENOPAUSAL
     Dosage: 60 MG, Q6MO
     Route: 058
     Dates: start: 20130715
  2. PAXIL                              /00500401/ [Concomitant]
  3. LISINOPRIL [Concomitant]
  4. TOPROL [Concomitant]
  5. PRILOSEC                           /00661201/ [Concomitant]
  6. PRAVACHOL [Concomitant]
  7. CALCIUM [Concomitant]
  8. VITAMIN D                          /00107901/ [Concomitant]
  9. FISH OIL [Concomitant]
  10. ASPIRIN [Concomitant]

REACTIONS (3)
  - Fungal infection [Unknown]
  - Candida infection [Unknown]
  - Rash [Not Recovered/Not Resolved]
